FAERS Safety Report 5042401-7 (Version None)
Quarter: 2006Q2

REPORT INFORMATION
  Report Type: 
  Country: None (occurrence: None)
  Receive Date: 20060627
  Receipt Date: 20060607
  Transmission Date: 20061013
  Serious: Yes (Life-Threatening, Hospitalization)
  Sender: FDA-Public Use
  Company Number: VER_0015_2006

PATIENT
  Age: 25 Year
  Sex: Female

DRUGS (2)
  1. TWINJECT [Suspect]
     Indication: FOOD ALLERGY
     Dosage: 1 DF ONCE SC
     Route: 058
     Dates: start: 20060101, end: 20060101
  2. TWINJECT [Suspect]
     Indication: FOOD ALLERGY
     Dosage: 1 DF ONCE SC
     Route: 058
     Dates: start: 20060101, end: 20060101

REACTIONS (2)
  - DEVICE FAILURE [None]
  - PHARMACEUTICAL PRODUCT COMPLAINT [None]
